FAERS Safety Report 20345032 (Version 1)
Quarter: 2022Q1

REPORT INFORMATION
  Report Type: Spontaneous
  Country: NO (occurrence: None)
  Receive Date: 20220118
  Receipt Date: 20220118
  Transmission Date: 20220423
  Serious: Yes (Hospitalization)
  Sender: FDA-Public Use
  Company Number: None

PATIENT
  Age: 31 Year
  Sex: Male

DRUGS (1)
  1. MABTHERA [Suspect]
     Active Substance: RITUXIMAB
     Indication: Multiple sclerosis
     Dosage: LAST INFUSION: 03/NOV/2021.
     Route: 042
     Dates: start: 20180401, end: 20211103

REACTIONS (8)
  - Acute kidney injury [Recovering/Resolving]
  - Neutropenia [Recovering/Resolving]
  - General physical health deterioration [Recovering/Resolving]
  - Respiratory symptom [Recovering/Resolving]
  - Pyrexia [Recovering/Resolving]
  - Tonsillitis [Recovering/Resolving]
  - Sepsis [Recovering/Resolving]
  - Renal tubular necrosis [Recovering/Resolving]

NARRATIVE: CASE EVENT DATE: 20211216
